FAERS Safety Report 10487950 (Version 7)
Quarter: 2016Q4

REPORT INFORMATION
  Report Type: Spontaneous
  Country: JP (occurrence: JP)
  Receive Date: 20141001
  Receipt Date: 20161013
  Transmission Date: 20170206
  Serious: Yes (Death, Other)
  Sender: FDA-Public Use
  Company Number: JP-B.I. PHARMACEUTICALS,INC./RIDGEFIELD-2014-BI-43356NB

PATIENT
  Age: 77 Year
  Sex: Male
  Weight: 56.6 kg

DRUGS (1)
  1. PRAZAXA [Suspect]
     Active Substance: DABIGATRAN ETEXILATE MESYLATE
     Indication: ATRIAL FIBRILLATION
     Dosage: TAKEN 110MG IN THE MORNING 75MG IN THE EVENING
     Route: 048

REACTIONS (6)
  - Brain oedema [Fatal]
  - Contusion [Unknown]
  - Subdural haematoma [Fatal]
  - Pneumonia [Fatal]
  - Fall [Unknown]
  - Subarachnoid haemorrhage [Unknown]

NARRATIVE: CASE EVENT DATE: 20130107
